FAERS Safety Report 5010141-6 (Version None)
Quarter: 2006Q2

REPORT INFORMATION
  Report Type: 
  Country: None (occurrence: None)
  Receive Date: 20060404
  Receipt Date: 20051209
  Transmission Date: 20061013
  Serious: No
  Sender: FDA-Public Use
  Company Number: US200512001746

PATIENT
  Age: 34 Year
  Sex: Male

DRUGS (2)
  1. CYMBALTA [Suspect]
     Indication: DEPRESSION
     Dosage: SEE IMAGE
     Dates: start: 20051111, end: 20051117
  2. CYMBALTA [Suspect]
     Indication: DEPRESSION
     Dosage: SEE IMAGE
     Dates: start: 20051118

REACTIONS (4)
  - MUSCLE SPASMS [None]
  - PHARYNGOLARYNGEAL PAIN [None]
  - SENSATION OF FOREIGN BODY [None]
  - THROAT IRRITATION [None]
